FAERS Safety Report 24937612 (Version 1)
Quarter: 2025Q1

REPORT INFORMATION
  Report Type: Spontaneous
  Country: IT (occurrence: IT)
  Receive Date: 20250206
  Receipt Date: 20250206
  Transmission Date: 20250409
  Serious: Yes (Other)
  Sender: TAKEDA
  Company Number: IT-LUNDBECK-DKLU4010192

PATIENT
  Age: 89 Year
  Sex: Male

DRUGS (2)
  1. BRINTELLIX [Suspect]
     Active Substance: VORTIOXETINE HYDROBROMIDE
     Indication: Affective disorder
     Dosage: 10 MILLIGRAM, QD
  2. XANAX [Concomitant]
     Active Substance: ALPRAZOLAM
     Indication: Sleep disorder

REACTIONS (8)
  - Hallucination [Unknown]
  - Tremor [Unknown]
  - Ageusia [Unknown]
  - Insomnia [Unknown]
  - Dizziness [Unknown]
  - Constipation [Unknown]
  - Agitation [Unknown]
  - Product use in unapproved indication [Unknown]
